FAERS Safety Report 6679500-X (Version None)
Quarter: 2010Q2

REPORT INFORMATION
  Report Type: 
  Country: None (occurrence: None)
  Receive Date: 20100408
  Receipt Date: 20090723
  Transmission Date: 20101027
  Serious: No
  Sender: FDA-Public Use
  Company Number: 2009-00514

PATIENT
  Age: 30 Year
  Sex: Female
  Weight: 46.2669 kg

DRUGS (1)
  1. ZICAM COLD REMEDY RAPIDMELTS WITH VITAMIN C [Suspect]
     Dosage: BID - 1 DAY
     Dates: start: 20090720, end: 20090721

REACTIONS (1)
  - AGEUSIA [None]
